FAERS Safety Report 23820026 (Version 1)
Quarter: 2024Q2

REPORT INFORMATION
  Report Type: Spontaneous
  Country: NL (occurrence: NL)
  Receive Date: 20240506
  Receipt Date: 20240506
  Transmission Date: 20240716
  Serious: Yes (Hospitalization)
  Sender: FDA-Public Use
  Company Number: None

PATIENT
  Age: 62 Year
  Sex: Female
  Weight: 87 kg

DRUGS (10)
  1. OXALIPLATIN [Suspect]
     Active Substance: OXALIPLATIN
     Indication: Colon cancer
     Dosage: STRENGTH: 5MG/ML, 250MG (IV 260.9 ML/U) 1X PER 4WK FOR 4X
     Dates: start: 20240122, end: 20240329
  2. APIXABAN [Concomitant]
     Active Substance: APIXABAN
     Dosage: STRENGTH: 5 MG
  3. GRANISETRON [Concomitant]
     Active Substance: GRANISETRON
     Dosage: STRENGTH: 1 MG/ML
  4. DEXAMETHASONE [Concomitant]
     Active Substance: DEXAMETHASONE
     Dosage: STRENGTH: 4 MG
  5. CAPECITABINE [Concomitant]
     Active Substance: CAPECITABINE
     Dosage: STRENGTH: 500 MG, 500MG 2DD 3 PIECES 2 WEEKS
  6. METOCLOPRAMIDE [Concomitant]
     Active Substance: METOCLOPRAMIDE
     Dosage: STRENGTH: 10 MG
  7. SPIRONOLACTONE [Concomitant]
     Active Substance: SPIRONOLACTONE
     Dosage: STRENGTH: 25 MG
  8. SUMATRIPTAN [Concomitant]
     Active Substance: SUMATRIPTAN
     Dosage: STRENGTH: 100 MG, AS REQUIRED 10MG 2DD
  9. FUROSEMIDE [Concomitant]
     Active Substance: FUROSEMIDE
     Dosage: STRENGTH: 20 MG
  10. CAPECITABINE [Concomitant]
     Active Substance: CAPECITABINE
     Dosage: STRENGTH: 150 MG

REACTIONS (1)
  - Hepatitis acute [Recovering/Resolving]
